FAERS Safety Report 7324497-2 (Version None)
Quarter: 2011Q1

REPORT INFORMATION
  Report Type: 
  Country: None (occurrence: None)
  Receive Date: 20110203
  Receipt Date: 20100920
  Transmission Date: 20110831
  Serious: Yes (Other)
  Sender: FDA-Public Use
  Company Number: 8052962

PATIENT
  Sex: Male
  Weight: 29.5 kg

DRUGS (3)
  1. KEPPRA [Suspect]
     Indication: EPILEPSY
     Dosage: (300 MG BID, LIQUID ORAL)
     Route: 048
     Dates: start: 20090928
  2. DILANTIN [Concomitant]
  3. TRILEPTAL [Concomitant]

REACTIONS (4)
  - MUSCULAR WEAKNESS [None]
  - DYSKINESIA [None]
  - NIGHTMARE [None]
  - HALLUCINATION, VISUAL [None]
